FAERS Safety Report 14430263 (Version 2)
Quarter: 2018Q3

REPORT INFORMATION
  Report Type: Report from Study
  Country: US (occurrence: US)
  Receive Date: 20180123
  Receipt Date: 20180719
  Transmission Date: 20181010
  Serious: No
  Sender: FDA-Public Use
  Company Number: US-AMGEN-USASL2017185778

PATIENT
  Age: 52 Year
  Sex: Male
  Weight: 82.99 kg

DRUGS (8)
  1. REPATHA [Suspect]
     Active Substance: EVOLOCUMAB
     Indication: HYPERLIPIDAEMIA
  2. FLONASE [Concomitant]
     Active Substance: FLUTICASONE PROPIONATE
     Dosage: 50 MUG/SPRAY
     Route: 045
  3. MEDROL [Concomitant]
     Active Substance: METHYLPREDNISOLONE
     Dosage: UNK UNK, QD
     Route: 048
  4. ASPIR 81 [Concomitant]
     Dosage: 81 MG, QD
     Route: 048
  5. AMOXICILLIN AND CLAVULANATE POTASSIU. [Concomitant]
     Dosage: 875 MG?125 MG
     Route: 048
  6. DEXTROMETHORPHAN W/PROMETHAZINE [Concomitant]
     Active Substance: DEXTROMETHORPHAN\PROMETHAZINE
     Dosage: 5 MG?6.25 RNG/5 ML
     Route: 048
  7. REPATHA [Suspect]
     Active Substance: EVOLOCUMAB
     Indication: BLOOD CHOLESTEROL INCREASED
     Dosage: 140 MG/ML, Q2WK
     Route: 058
     Dates: start: 20171009
  8. ZYRTEC [Concomitant]
     Active Substance: CETIRIZINE HYDROCHLORIDE
     Dosage: 10 MG, QD
     Route: 048

REACTIONS (2)
  - Injection site pain [Unknown]
  - Injection site haemorrhage [Unknown]
